FAERS Safety Report 7076962-3 (Version None)
Quarter: 2010Q4

REPORT INFORMATION
  Report Type: 
  Country: None (occurrence: None)
  Receive Date: 20101101
  Receipt Date: 20101025
  Transmission Date: 20110411
  Serious: Yes (Hospitalization, Other)
  Sender: FDA-Public Use
  Company Number: US-ABBOTT-10P-163-0673993-00

PATIENT
  Sex: Male
  Weight: 145.28 kg

DRUGS (17)
  1. HUMIRA [Suspect]
     Indication: RHEUMATOID ARTHRITIS
  2. ACIPHEX [Concomitant]
     Indication: GASTRIC DISORDER
  3. ADVAIR DISKUS 100/50 [Concomitant]
     Indication: CHRONIC OBSTRUCTIVE PULMONARY DISEASE
     Dosage: 250/50MCG
  4. ARAVA [Concomitant]
     Indication: ARTHRITIS
  5. ASPIRIN [Concomitant]
     Indication: CARDIAC DISORDER
  6. AVAPRO [Concomitant]
     Indication: PRODUCT USED FOR UNKNOWN INDICATION
  7. FOLIC ACID [Concomitant]
     Indication: ARTHRITIS
  8. FUROSEMIDE [Concomitant]
     Indication: FLUID RETENTION
  9. LANTUS [Concomitant]
     Indication: DIABETES MELLITUS
     Dosage: AT BEDTIME
  10. LOVASTATIN [Concomitant]
     Indication: BLOOD CHOLESTEROL INCREASED
     Dosage: AT BEDTIME
  11. METHOTREXATE [Concomitant]
     Indication: RHEUMATOID ARTHRITIS
  12. MS CR [Concomitant]
     Indication: PAIN
  13. NITROGLYCERIN [Concomitant]
     Indication: CHEST PAIN
  14. PREDNISONE [Concomitant]
     Indication: ARTHRITIS
  15. TOPROL-XL [Concomitant]
     Indication: BLOOD PRESSURE
  16. BYETTA [Concomitant]
     Indication: DIABETES MELLITUS
  17. PLAVIX [Concomitant]
     Indication: STENT PLACEMENT

REACTIONS (3)
  - ANGIOPLASTY [None]
  - CARDIAC STRESS TEST ABNORMAL [None]
  - STENT PLACEMENT [None]
